FAERS Safety Report 8990399 (Version 3)
Quarter: 2014Q2

REPORT INFORMATION
  Report Type: Report from Study
  Country: JP (occurrence: JP)
  Receive Date: 20121228
  Receipt Date: 20140428
  Transmission Date: 20141212
  Serious: Yes (Other)
  Sender: FDA-Public Use
  Company Number: JP-JNJFOC-20121212202

PATIENT
  Age: 57 Year
  Sex: Male

DRUGS (13)
  1. STELARA [Suspect]
     Indication: PSORIASIS
     Route: 058
     Dates: start: 20120515, end: 20120515
  2. STELARA [Suspect]
     Indication: PSORIASIS
     Route: 058
     Dates: start: 20120221, end: 20120221
  3. STELARA [Suspect]
     Indication: PSORIASIS
     Route: 058
     Dates: start: 20111122, end: 20111122
  4. STELARA [Suspect]
     Indication: PSORIASIS
     Route: 058
     Dates: start: 20111025, end: 20111025
  5. REMERON [Suspect]
     Indication: PRODUCT USED FOR UNKNOWN INDICATION
     Route: 048
     Dates: start: 20120509, end: 20120805
  6. DOVONEX [Concomitant]
     Indication: PSORIASIS
     Route: 061
     Dates: start: 20111122
  7. ANTEBATE [Concomitant]
     Indication: PSORIASIS
     Route: 061
     Dates: start: 20111122
  8. ANTEBATE [Concomitant]
     Indication: PSORIASIS
     Route: 061
     Dates: start: 20111122
  9. OXAROL [Concomitant]
     Indication: PSORIASIS
     Route: 061
     Dates: start: 20120828
  10. LOCOID [Concomitant]
     Indication: PSORIASIS
     Route: 061
     Dates: start: 20121009
  11. LIMAS [Concomitant]
     Route: 048
  12. MEDEPOLIN [Concomitant]
     Route: 048
  13. NELBON [Concomitant]
     Route: 048

REACTIONS (1)
  - Hepatic function abnormal [Recovering/Resolving]
